FAERS Safety Report 4737014-8 (Version None)
Quarter: 2005Q3

REPORT INFORMATION
  Report Type: 
  Country: None (occurrence: None)
  Receive Date: 20050802
  Receipt Date: 20050722
  Transmission Date: 20060218
  Serious: Yes (Hospitalization, Other)
  Sender: FDA-Public Use
  Company Number: 2005105852

PATIENT
  Age: 53 Year
  Sex: Male

DRUGS (10)
  1. LIPITOR [Suspect]
     Indication: BLOOD CHOLESTEROL
     Dosage: 10 MG (20 MG, 1/2 TAB DAILY),ORAL
     Route: 048
     Dates: start: 20050210
  2. ZOLOFT [Suspect]
     Indication: DEPRESSION
     Dosage: 100 MG (100 MG, 1 IN 1 D), ORAL
     Route: 048
     Dates: start: 20050215
  3. ZOLOFT [Suspect]
     Indication: PANIC ATTACK
     Dosage: 100 MG (100 MG, 1 IN 1 D), ORAL
     Route: 048
     Dates: start: 20050215
  4. CLONAZEPAM [Concomitant]
  5. AMITRIPTYLINE HCL [Concomitant]
  6. HYDROCODONE BITARTRATE + ACETAMINOPHEN [Concomitant]
  7. NEXIUM [Concomitant]
  8. ANTIHYPERTENSIVES (ANTIHYPERTENSIVES) [Concomitant]
  9. ACETYLSALICYLIC ACID SRT [Concomitant]
  10. VITAMINS (VITAMINS) [Concomitant]

REACTIONS (11)
  - ANAEMIA [None]
  - BLOOD PRESSURE ABNORMAL [None]
  - BLOOD SODIUM DECREASED [None]
  - DEPRESSION [None]
  - HYPOAESTHESIA [None]
  - LUNG NEOPLASM MALIGNANT [None]
  - NAIL DISORDER [None]
  - NEOPLASM MALIGNANT [None]
  - PANIC ATTACK [None]
  - VASCULAR NEOPLASM [None]
  - WHITE BLOOD CELL COUNT DECREASED [None]
